FAERS Safety Report 6078430-4 (Version None)
Quarter: 2009Q1

REPORT INFORMATION
  Report Type: 
  Country: None (occurrence: None)
  Receive Date: 20090212
  Receipt Date: 20090129
  Transmission Date: 20090719
  Serious: Yes (Hospitalization, Other)
  Sender: FDA-Public Use
  Company Number: 20090037

PATIENT
  Age: 30 Year
  Sex: Female

DRUGS (2)
  1. DEXFERRUM [Suspect]
     Indication: IRON DEFICIENCY ANAEMIA
     Dosage: 100 MG/DAY
     Route: 030
  2. CONCONITANT MEDICATIONS UNKNOWN [Concomitant]

REACTIONS (1)
  - THROMBOCYTOPENIA [None]
